FAERS Safety Report 5990719-3 (Version None)
Quarter: 2008Q4

REPORT INFORMATION
  Report Type: 
  Country: None (occurrence: None)
  Receive Date: 20081211
  Receipt Date: 20081205
  Transmission Date: 20090506
  Serious: Yes (Death, Hospitalization, Other)
  Sender: FDA-Public Use
  Company Number: PHNR2007AU02038

PATIENT
  Sex: Male

DRUGS (6)
  1. CLOZARIL [Suspect]
     Indication: SCHIZOPHRENIA
     Dosage: 700 MG DAILY
     Route: 048
     Dates: start: 19930610, end: 20071026
  2. CLOZARIL [Suspect]
     Dosage: UNK
  3. RISPERIDONE [Suspect]
  4. SERTRALINE [Concomitant]
     Dosage: 200 MG, QD MANE
     Dates: start: 20021001, end: 20071031
  5. PERINDOPRIL [Concomitant]
  6. ATORVASTATIN [Concomitant]

REACTIONS (11)
  - ABSCESS [None]
  - AORTIC VALVE INCOMPETENCE [None]
  - CARDIAC FAILURE [None]
  - DYSPNOEA [None]
  - ENDOCARDITIS [None]
  - MYOCARDIAL INFARCTION [None]
  - NEUROLEPTIC MALIGNANT SYNDROME [None]
  - PALLOR [None]
  - PERICARDIAL DRAINAGE [None]
  - PERICARDIAL EFFUSION [None]
  - PERICARDIAL EXCISION [None]
